FAERS Safety Report 17646479 (Version 1)
Quarter: 2020Q2

REPORT INFORMATION
  Report Type: Report from Study
  Country: US (occurrence: US)
  Receive Date: 20200408
  Receipt Date: 20200408
  Transmission Date: 20200713
  Serious: No
  Sender: FDA-Public Use
  Company Number: US-BIOVITRUM-2020US0036

PATIENT
  Sex: Male

DRUGS (1)
  1. KINERET [Suspect]
     Active Substance: ANAKINRA
     Indication: RHEUMATOID ARTHRITIS
     Route: 058
     Dates: start: 20191217

REACTIONS (5)
  - Rhinorrhoea [Unknown]
  - Headache [Unknown]
  - Hernia [Unknown]
  - Drug ineffective [Recovered/Resolved]
  - Pain [Unknown]
